FAERS Safety Report 7077083-6 (Version None)
Quarter: 2010Q4

REPORT INFORMATION
  Report Type: 
  Country: None (occurrence: None)
  Receive Date: 20101101
  Receipt Date: 20101020
  Transmission Date: 20110411
  Serious: Yes (Other)
  Sender: FDA-Public Use
  Company Number: US-ROCHE-735755

PATIENT
  Age: 35 Year
  Sex: Female
  Weight: 56.8 kg

DRUGS (1)
  1. ACCUTANE [Suspect]
     Indication: ACNE
     Route: 048
     Dates: start: 19890101, end: 19910101

REACTIONS (5)
  - DYSPEPSIA [None]
  - HEPATIC STEATOSIS [None]
  - IMPAIRED GASTRIC EMPTYING [None]
  - IRRITABLE BOWEL SYNDROME [None]
  - VOMITING [None]
